FAERS Safety Report 8812271 (Version 1)
Quarter: 2012Q4

REPORT INFORMATION
  Report Type: 
  Country: US (occurrence: US)
  Receive Date: 20120927
  Receipt Date: 20120927
  Transmission Date: 20130627
  Serious: Yes (Death, Other)
  Sender: FDA-Public Use
  Company Number: US-ROCHE-1124590

PATIENT
  Sex: Male

DRUGS (3)
  1. AVASTIN [Suspect]
     Indication: MALIGNANT RESPIRATORY TRACT NEOPLASM
     Dosage: doses given on 18/Aug, 08/Sep (year unspecified) and 28/Sep/2005
     Route: 065
  2. CARBOPLATIN [Concomitant]
  3. TAXOL [Concomitant]

REACTIONS (8)
  - Death [Fatal]
  - Adenocarcinoma [Unknown]
  - Metastases to bone [Unknown]
  - Dyspnoea [Unknown]
  - Cough [Unknown]
  - Chronic obstructive pulmonary disease [Unknown]
  - Weight decreased [Unknown]
  - Musculoskeletal chest pain [Unknown]
